FAERS Safety Report 7711001-X (Version None)
Quarter: 2011Q3

REPORT INFORMATION
  Report Type: 
  Country: None (occurrence: None)
  Receive Date: 20110825
  Receipt Date: 20110819
  Transmission Date: 20111222
  Serious: Yes (Hospitalization)
  Sender: FDA-Public Use
  Company Number: FR-GENENTECH-321891

PATIENT
  Sex: Female
  Weight: 62 kg

DRUGS (12)
  1. DEXAMETHASONE [Suspect]
     Indication: MANTLE CELL LYMPHOMA
     Dosage: 40 MG, QAM
     Route: 041
     Dates: start: 20110616, end: 20110619
  2. VALACYCLOVIR HYDROCHLORIDE [Concomitant]
     Indication: ANTIVIRAL PROPHYLAXIS
     Dosage: UNK
     Route: 048
     Dates: start: 20110615
  3. RITUXIMAB [Suspect]
     Indication: MANTLE CELL LYMPHOMA
     Dosage: UNK
     Route: 041
     Dates: start: 20110620, end: 20110620
  4. CISPLATIN [Suspect]
     Indication: MANTLE CELL LYMPHOMA
     Dosage: 165 UNK, UNK
     Route: 041
     Dates: start: 20110616, end: 20110616
  5. METHOTREXATE [Concomitant]
     Indication: PRODUCT USED FOR UNKNOWN INDICATION
     Dosage: 15 MG, UNK
     Route: 037
     Dates: start: 20110615, end: 20110615
  6. NEXIUM [Concomitant]
     Indication: GASTROOESOPHAGEAL REFLUX DISEASE
     Dosage: UNK
     Route: 048
     Dates: start: 20110615
  7. ACETAMINOPHEN [Concomitant]
     Indication: PAIN
     Dosage: UNK
     Route: 048
     Dates: start: 20110615
  8. NEULASTA [Concomitant]
     Indication: PRODUCT USED FOR UNKNOWN INDICATION
     Dosage: UNK
     Route: 058
     Dates: start: 20110620, end: 20110620
  9. MOTILIUM [Concomitant]
     Indication: VOMITING
     Dosage: UNK
     Route: 048
     Dates: start: 20110625
  10. LEVOTHYROXINE SODIUM [Concomitant]
     Indication: HYPOTHYROIDISM
     Dosage: UNK
     Route: 048
  11. CYTARABINE [Suspect]
     Indication: MANTLE CELL LYMPHOMA
     Dosage: 3304 MG, BID
     Route: 041
     Dates: start: 20110616, end: 20110616
  12. DUPHALAC [Concomitant]
     Indication: CONSTIPATION
     Dosage: UNK
     Route: 048
     Dates: start: 20110615

REACTIONS (1)
  - FEBRILE BONE MARROW APLASIA [None]
